FAERS Safety Report 5701167-5 (Version None)
Quarter: 2008Q2

REPORT INFORMATION
  Report Type: 
  Country: None (occurrence: None)
  Receive Date: 20080407
  Receipt Date: 20080327
  Transmission Date: 20081010
  Serious: Yes (Other)
  Sender: FDA-Public Use
  Company Number: CHNY2008AU01413

PATIENT
  Sex: Female

DRUGS (3)
  1. OTRIVIN (NCH)(OXYLOMETAZOLINE HYDROCHLORIDE) NASAL SPRAY [Suspect]
     Indication: NASOPHARYNGITIS
     Dosage: NASAL
     Route: 045
     Dates: start: 20080326
  2. STREPSILS (AMYLMETACRESOL, DICHLOROBENZYL ALCOHOL) [Concomitant]
  3. IBUPROFEN [Concomitant]

REACTIONS (5)
  - INCORRECT DOSE ADMINISTERED [None]
  - PALPITATIONS [None]
  - PANIC ATTACK [None]
  - PHARYNGOLARYNGEAL PAIN [None]
  - RHINORRHOEA [None]
